FAERS Safety Report 5866037-0 (Version None)
Quarter: 2008Q3

REPORT INFORMATION
  Report Type: 
  Country: None (occurrence: None)
  Receive Date: 20080829
  Receipt Date: 20080822
  Transmission Date: 20090109
  Serious: No
  Sender: FDA-Public Use
  Company Number: US-BOEHRINGER INGELHEIM GMBH, GERMANY-2008-BP-12311BP

PATIENT
  Age: 67 Year
  Sex: Female

DRUGS (9)
  1. ZANTAC 75 [Suspect]
     Indication: DYSPEPSIA
     Route: 048
     Dates: start: 20080725
  2. ESTRATEST [Concomitant]
  3. HYDROCHLOROTHIAZIDE [Concomitant]
  4. ASPIRIN [Concomitant]
  5. ALEVE [Concomitant]
  6. GREEN SOURCE VITAMIN [Concomitant]
  7. FLAXSEED OIL [Concomitant]
  8. VITAMIN E [Concomitant]
  9. RESERVATOL GRAPE EXTRACT [Concomitant]

REACTIONS (1)
  - CONSTIPATION [None]
